FAERS Safety Report 9056057 (Version 2)
Quarter: 2013Q1

REPORT INFORMATION
  Report Type: Spontaneous
  Country: US (occurrence: US)
  Receive Date: 20130205
  Receipt Date: 20130320
  Transmission Date: 20140127
  Serious: Yes (Other)
  Sender: FDA-Public Use
  Company Number: PHEH2013US002727

PATIENT
  Sex: Female
  Weight: 64.4 kg

DRUGS (8)
  1. GLEEVEC [Suspect]
     Indication: CHRONIC MYELOID LEUKAEMIA
     Dosage: 400 MG, DAILY (100 MG FOUR TIMES DAILY)
     Route: 048
     Dates: start: 20100406
  2. NORVASC [Concomitant]
  3. SYNTHROID [Concomitant]
  4. ZOLAX//ALPRAZOLAM [Concomitant]
  5. CHLORTHALIDONE [Concomitant]
  6. SINTROM [Concomitant]
  7. HYDROCODONE [Concomitant]
  8. NITRO [Concomitant]

REACTIONS (3)
  - Ligament rupture [Recovered/Resolved]
  - Local swelling [Unknown]
  - Pain in extremity [Unknown]
